FAERS Safety Report 6962528-X (Version None)
Quarter: 2010Q3

REPORT INFORMATION
  Report Type: 
  Country: None (occurrence: None)
  Receive Date: 20100902
  Receipt Date: 20100826
  Transmission Date: 20110219
  Serious: Yes (Other)
  Sender: FDA-Public Use
  Company Number: US-BAYER-201031960NA

PATIENT
  Sex: Female

DRUGS (1)
  1. YASMIN [Suspect]
     Indication: CONTRACEPTION
     Route: 048
     Dates: start: 20100401

REACTIONS (3)
  - BLOOD PRESSURE INCREASED [None]
  - MALAISE [None]
  - NAUSEA [None]
